FAERS Safety Report 8899649 (Version 1)
Quarter: 2012Q4

REPORT INFORMATION
  Report Type: 
  Country: US (occurrence: US)
  Receive Date: 20121108
  Receipt Date: 20121108
  Transmission Date: 20130627
  Serious: No
  Sender: FDA-Public Use
  Company Number: US-AMGEN-USASP2012035628

PATIENT
  Age: 53 Year
  Sex: Female

DRUGS (18)
  1. ENBREL [Suspect]
     Indication: PRODUCT USED FOR UNKNOWN INDICATION
     Dosage: 50 mg, qwk
     Route: 058
  2. MORPHINE [Concomitant]
     Dosage: 100 mg, UNK
  3. SOMA [Concomitant]
     Dosage: 250 mg, UNK
  4. CYMBALTA [Concomitant]
     Dosage: 20 mg, UNK
  5. SEROQUEL [Concomitant]
     Dosage: 100 mg, UNK
  6. IBUPROFEN [Concomitant]
     Dosage: 200 mg, UNK
  7. NEURONTIN [Concomitant]
     Dosage: 100 mg, UNK
  8. SULFASALAZIN [Concomitant]
     Dosage: 500 mg, UNK
  9. HYDROCHLOROTH [Concomitant]
     Dosage: 12.5 mg, UNK
  10. METOPROLOL [Concomitant]
     Dosage: 100 mg, UNK
  11. PROAIR                             /00139502/ [Concomitant]
  12. POTASSIUM [Concomitant]
     Dosage: 75 mg, UNK
  13. ADVAIR [Concomitant]
  14. CALTRATE +D                        /01204201/ [Concomitant]
  15. ALLERGY MEDICATION [Concomitant]
  16. ADDERALL [Concomitant]
     Dosage: 10 mg, UNK
  17. DIAZEPAM [Concomitant]
     Dosage: 2 mg, UNK
  18. TEMAZEPAM [Concomitant]
     Dosage: 15 mg, UNK

REACTIONS (1)
  - Influenza [Unknown]
